FAERS Safety Report 7134780-1 (Version None)
Quarter: 2010Q4

REPORT INFORMATION
  Report Type: 
  Country: None (occurrence: None)
  Receive Date: 20101203
  Receipt Date: 20101129
  Transmission Date: 20110411
  Serious: Yes (Other)
  Sender: FDA-Public Use
  Company Number: BR-ROCHE-745063

PATIENT
  Sex: Female
  Weight: 79 kg

DRUGS (6)
  1. TOCILIZUMAB [Suspect]
     Indication: RHEUMATOID ARTHRITIS
     Dosage: FORM: INFUSION
     Route: 042
     Dates: start: 20100723
  2. FOLIC ACID [Concomitant]
  3. NIFEDIPINA [Concomitant]
  4. HYDROCHLOROTHIAZIDE [Concomitant]
  5. ENALAPRIL MALEATE [Concomitant]
  6. PREDNISONE [Concomitant]

REACTIONS (1)
  - DEEP VEIN THROMBOSIS [None]
